FAERS Safety Report 14935766 (Version 1)
Quarter: 2018Q2

REPORT INFORMATION
  Report Type: Spontaneous
  Country: GB (occurrence: GB)
  Receive Date: 20180524
  Receipt Date: 20180524
  Transmission Date: 20180711
  Serious: Yes (Life-Threatening, Hospitalization, Disabling, Other)
  Sender: FDA-Public Use
  Company Number: GB-DRREDDYS-GER/UKI/13/0034579

PATIENT
  Age: 50 Year
  Sex: Female
  Weight: 72 kg

DRUGS (11)
  1. AUGMENTIN [Concomitant]
     Active Substance: AMOXICILLIN\CLAVULANATE POTASSIUM
     Indication: BLADDER PAIN
  2. TRIMETHOPRIM. [Concomitant]
     Active Substance: TRIMETHOPRIM
     Indication: BLADDER PAIN
  3. IBUPROFEN. [Interacting]
     Active Substance: IBUPROFEN
     Indication: PAIN
     Route: 048
     Dates: start: 20101231
  4. OXYCONTIN [Concomitant]
     Active Substance: OXYCODONE HYDROCHLORIDE
     Indication: PAIN
  5. TRIMETHOPRIM. [Concomitant]
     Active Substance: TRIMETHOPRIM
     Indication: URINARY TRACT INFECTION
  6. NASONEX [Concomitant]
     Active Substance: MOMETASONE FUROATE
     Indication: HYPERSENSITIVITY
     Dosage: LONG TERM
     Route: 055
  7. CIPROFLOXACIN. [Interacting]
     Active Substance: CIPROFLOXACIN
     Indication: URINARY TRACT INFECTION
  8. AUGMENTIN [Concomitant]
     Active Substance: AMOXICILLIN\CLAVULANATE POTASSIUM
     Indication: URINARY TRACT INFECTION
  9. CIPROFLOXACIN. [Suspect]
     Active Substance: CIPROFLOXACIN
     Indication: BLADDER PAIN
     Route: 048
     Dates: start: 20110101, end: 20110107
  10. NASONEX [Concomitant]
     Active Substance: MOMETASONE FUROATE
     Indication: HYPERSENSITIVITY
     Route: 055
  11. OMEPRAZOLE. [Interacting]
     Active Substance: OMEPRAZOLE
     Indication: PRODUCT USED FOR UNKNOWN INDICATION

REACTIONS (86)
  - Breast pain [Unknown]
  - Fatigue [Not Recovered/Not Resolved]
  - Vitreous floaters [Not Recovered/Not Resolved]
  - Fall [Unknown]
  - Insomnia [Not Recovered/Not Resolved]
  - Rash [Unknown]
  - Malaise [Not Recovered/Not Resolved]
  - Muscle twitching [Recovered/Resolved]
  - Hypotension [Recovering/Resolving]
  - Head discomfort [Recovering/Resolving]
  - Sensory disturbance [Unknown]
  - Alopecia [Recovered/Resolved]
  - Gait disturbance [Unknown]
  - Weight decreased [Recovering/Resolving]
  - Skin sensitisation [Recovering/Resolving]
  - Confusional state [Recovering/Resolving]
  - Cognitive disorder [Recovering/Resolving]
  - Migraine [Recovering/Resolving]
  - Palpitations [Not Recovered/Not Resolved]
  - Photosensitivity reaction [Recovering/Resolving]
  - Cachexia [Unknown]
  - Time perception altered [Not Recovered/Not Resolved]
  - Erythema [Recovered/Resolved]
  - Mucous membrane disorder [Recovered/Resolved]
  - Impaired healing [Recovered/Resolved]
  - Eye pain [Not Recovered/Not Resolved]
  - Feeling abnormal [Unknown]
  - Tinnitus [Not Recovered/Not Resolved]
  - Swelling [Unknown]
  - Allodynia [Not Recovered/Not Resolved]
  - Abnormal loss of weight [Recovered/Resolved]
  - Drug interaction [Unknown]
  - Pain [Not Recovered/Not Resolved]
  - Headache [Unknown]
  - Joint noise [Unknown]
  - Dyspnoea [Not Recovered/Not Resolved]
  - Musculoskeletal stiffness [Unknown]
  - Chest discomfort [Not Recovered/Not Resolved]
  - Pain in extremity [Not Recovered/Not Resolved]
  - Dysarthria [Recovering/Resolving]
  - Neuralgia [Not Recovered/Not Resolved]
  - Allergy to arthropod bite [Not Recovered/Not Resolved]
  - Musculoskeletal pain [Recovered/Resolved]
  - Joint swelling [Recovered/Resolved]
  - Rhinorrhoea [Recovering/Resolving]
  - Contusion [Recovered/Resolved]
  - Vasodilatation [Unknown]
  - Dry eye [Unknown]
  - Arthralgia [Not Recovered/Not Resolved]
  - Hyperhidrosis [Unknown]
  - Nausea [Unknown]
  - Pain of skin [Not Recovered/Not Resolved]
  - Reflexes abnormal [Not Recovered/Not Resolved]
  - Skin burning sensation [Recovering/Resolving]
  - Hyperacusis [Recovering/Resolving]
  - Muscle contractions involuntary [Recovered/Resolved]
  - Memory impairment [Not Recovered/Not Resolved]
  - Back pain [Unknown]
  - Pruritus generalised [Recovering/Resolving]
  - Hypoacusis [Not Recovered/Not Resolved]
  - Dyskinesia [Recovered/Resolved]
  - Neuropathy peripheral [Recovering/Resolving]
  - Skin atrophy [Unknown]
  - Visual acuity reduced [Unknown]
  - Vomiting [Unknown]
  - Aphasia [Recovering/Resolving]
  - Hypersensitivity [Unknown]
  - Iatrogenic injury [Not Recovered/Not Resolved]
  - Myalgia [Not Recovered/Not Resolved]
  - Hypermobility syndrome [Not Recovered/Not Resolved]
  - Amnesia [Unknown]
  - Vomiting projectile [Recovering/Resolving]
  - Balance disorder [Recovering/Resolving]
  - Formication [Recovering/Resolving]
  - Paraesthesia [Recovering/Resolving]
  - Photophobia [Not Recovered/Not Resolved]
  - Psychomotor skills impaired [Recovering/Resolving]
  - Sleep disorder [Unknown]
  - Disorientation [Recovering/Resolving]
  - Asthenia [Unknown]
  - Bone pain [Not Recovered/Not Resolved]
  - Lacrimation increased [Recovering/Resolving]
  - Extrasystoles [Not Recovered/Not Resolved]
  - Muscle atrophy [Recovered/Resolved]
  - Neurotoxicity [Unknown]
  - Chills [Recovering/Resolving]
